FAERS Safety Report 8934526 (Version 1)
Quarter: 2012Q4

REPORT INFORMATION
  Report Type: 
  Country: US (occurrence: US)
  Receive Date: 20121129
  Receipt Date: 20121129
  Transmission Date: 20130627
  Serious: No
  Sender: FDA-Public Use
  Company Number: US-GLAXOSMITHKLINE-A0975575A

PATIENT
  Age: 58 Year
  Sex: Female

DRUGS (9)
  1. FLOVENT [Suspect]
     Indication: ASTHMA
     Dosage: 2PUFF Twice per day
     Route: 055
     Dates: start: 20120322
  2. LEVOTHYROXIN [Concomitant]
  3. SINGULAIR [Concomitant]
  4. CLARINEX [Concomitant]
  5. PAROXETINE [Concomitant]
  6. VITAMIN D [Concomitant]
  7. MALIC ACID + MAGNESIUM [Concomitant]
  8. FLAX OIL [Concomitant]
  9. NASONEX [Concomitant]

REACTIONS (4)
  - Throat irritation [Not Recovered/Not Resolved]
  - Oropharyngeal discomfort [Unknown]
  - Drug ineffective [Unknown]
  - Product quality issue [Unknown]
